FAERS Safety Report 9187396 (Version 1)
Quarter: 2013Q1

REPORT INFORMATION
  Report Type: Spontaneous
  Country: US (occurrence: US)
  Receive Date: 20130325
  Receipt Date: 20130325
  Transmission Date: 20140127
  Serious: Yes (Other)
  Sender: FDA-Public Use
  Company Number: US-PFIZER INC-2013094776

PATIENT
  Age: 70 Year
  Sex: Female
  Weight: 68.03 kg

DRUGS (4)
  1. NORVASC [Suspect]
     Indication: HYPERTENSION
     Dosage: 5 MG, 2X/DAY
  2. JANUVIA [Concomitant]
     Indication: DIABETES MELLITUS
     Dosage: 100 MG, 1X/DAY
  3. INSULIN GLARGINE [Concomitant]
     Indication: DIABETES MELLITUS
     Dosage: 20 IU, 1X/DAY
  4. GLIMEPIRIDE [Concomitant]
     Indication: DIABETES MELLITUS
     Dosage: 16 MG, 1X/DAY
     Route: 048

REACTIONS (2)
  - Fall [Unknown]
  - Upper limb fracture [Unknown]
